FAERS Safety Report 10088525 (Version 1)
Quarter: 2014Q2

REPORT INFORMATION
  Report Type: Spontaneous
  Country: US (occurrence: US)
  Receive Date: 20140421
  Receipt Date: 20140421
  Transmission Date: 20141212
  Serious: No
  Sender: FDA-Public Use
  Company Number: US-BIOGENIDEC-2014BI032062

PATIENT
  Age: 60 Year
  Sex: Female

DRUGS (2)
  1. TECFIDERA [Suspect]
     Indication: MULTIPLE SCLEROSIS
     Route: 048
     Dates: start: 20140307, end: 20140313
  2. TECFIDERA [Suspect]
     Indication: MULTIPLE SCLEROSIS
     Route: 048
     Dates: start: 20140314

REACTIONS (7)
  - Fatigue [Unknown]
  - Dry mouth [Unknown]
  - Lip exfoliation [Unknown]
  - Lip dry [Unknown]
  - Flushing [Unknown]
  - Pruritus [Unknown]
  - Abdominal discomfort [Unknown]
